FAERS Safety Report 6993009-5 (Version None)
Quarter: 2010Q3

REPORT INFORMATION
  Report Type: 
  Country: None (occurrence: None)
  Receive Date: 20100917
  Receipt Date: 20100915
  Transmission Date: 20110219
  Serious: Yes (Hospitalization)
  Sender: FDA-Public Use
  Company Number: FR-BRISTOL-MYERS SQUIBB COMPANY-15289085

PATIENT
  Age: 43 Year

DRUGS (4)
  1. CETUXIMAB [Suspect]
     Indication: COLON CANCER
     Dosage: RECENT INF:09MAR2010
     Route: 042
     Dates: start: 20091023
  2. OXALIPLATIN [Suspect]
     Indication: COLON CANCER
     Dosage: RECENT INF:04MAR2010
     Route: 042
     Dates: start: 20091023
  3. FLUOROURACIL [Suspect]
     Indication: COLON CANCER
     Dosage: RECENT INF:05MAR2010
     Route: 042
     Dates: start: 20091023
  4. FOLINIC ACID [Suspect]
     Indication: COLON CANCER
     Dosage: RECENT INF:05MAR2010
     Route: 042
     Dates: start: 20091023

REACTIONS (2)
  - HEADACHE [None]
  - PARAESTHESIA [None]
